FAERS Safety Report 16905815 (Version 1)
Quarter: 2019Q4

REPORT INFORMATION
  Report Type: Spontaneous
  Country: US (occurrence: US)
  Receive Date: 20190819
  Receipt Date: 20190819
  Transmission Date: 20200122
  Serious: Yes (Hospitalization)
  Sender: FDA-Public Use
  Company Number: None

PATIENT
  Age: 82 Year
  Sex: Male

DRUGS (5)
  1. ABIRATERONE ACETATE 250MG [Suspect]
     Active Substance: ABIRATERONE ACETATE
     Indication: PROSTATE CANCER
     Route: 048
     Dates: start: 20190111
  2. CEPHALEXIN. [Suspect]
     Active Substance: CEPHALEXIN
  3. PREDNISONE. [Suspect]
     Active Substance: PREDNISONE
  4. PROBIOTIC [Suspect]
     Active Substance: PROBIOTICS NOS
  5. MYRBETRIQ [Concomitant]
     Active Substance: MIRABEGRON

REACTIONS (1)
  - Leg amputation [None]
